FAERS Safety Report 12939831 (Version 1)
Quarter: 2016Q4

REPORT INFORMATION
  Report Type: Spontaneous
  Country: US (occurrence: US)
  Receive Date: 20161115
  Receipt Date: 20161115
  Transmission Date: 20170207
  Serious: No
  Sender: FDA-Public Use
  Company Number: US-MACLEODS PHARMACEUTICALS US LTD-MAC2015002127

PATIENT

DRUGS (1)
  1. IRBESARTAN/HYDROCHLOROTHIAZIDE 150/12.5MG TABLET [Suspect]
     Active Substance: HYDROCHLOROTHIAZIDE\IRBESARTAN
     Indication: PRODUCT USED FOR UNKNOWN INDICATION
     Dosage: 150/12.5 MG, (DOUBLE THE DOSE) UNK
     Route: 065

REACTIONS (4)
  - Product quality issue [None]
  - Overdose [None]
  - Drug ineffective [Unknown]
  - Product formulation issue [None]
